FAERS Safety Report 17692101 (Version 4)
Quarter: 2022Q2

REPORT INFORMATION
  Report Type: Spontaneous
  Country: US (occurrence: US)
  Receive Date: 20200422
  Receipt Date: 20220503
  Transmission Date: 20220721
  Serious: No
  Sender: FDA-Public Use
  Company Number: US-PFIZER INC-2020156738

PATIENT
  Age: 67 Year
  Sex: Male

DRUGS (2)
  1. LYRICA [Suspect]
     Active Substance: PREGABALIN
     Dosage: UNK, 2X/DAY (LYRICA 150 PO (PER ORAL) BID (TWICE A DAY)/#180 ONE HUNDRED EIGHTY)
     Route: 048
  2. LYRICA [Suspect]
     Active Substance: PREGABALIN
     Dosage: 200 MG, 2X/DAY (200MG PO (PER ORAL) BID (TWICE DAILY))
     Route: 048

REACTIONS (4)
  - Joint range of motion decreased [Unknown]
  - Pain [Unknown]
  - Aphasia [Unknown]
  - Illness [Unknown]
